FAERS Safety Report 24461644 (Version 1)
Quarter: 2024Q4

REPORT INFORMATION
  Report Type: Spontaneous
  Country: MX (occurrence: MX)
  Receive Date: 20241018
  Receipt Date: 20241018
  Transmission Date: 20250115
  Serious: No
  Sender: ROCHE
  Company Number: MX-ROCHE-3576728

PATIENT
  Age: 40 Year
  Sex: Female
  Weight: 63.0 kg

DRUGS (2)
  1. RITUXIMAB [Suspect]
     Active Substance: RITUXIMAB
     Indication: Multiple sclerosis
     Dosage: 1G IN 1000 CUBIC CENTIMETERS OF 0.9% SALINE
     Route: 042
     Dates: start: 202111, end: 202309
  2. SALINE [Concomitant]
     Active Substance: SODIUM CHLORIDE
     Dosage: 250 CC SALINE SOLUTION PASS IV IN 30 MIN
     Route: 042

REACTIONS (2)
  - Off label use [Unknown]
  - No adverse event [Unknown]

NARRATIVE: CASE EVENT DATE: 20211101
